FAERS Safety Report 24303507 (Version 1)
Quarter: 2024Q3

REPORT INFORMATION
  Report Type: Spontaneous
  Country: CA (occurrence: None)
  Receive Date: 20240909
  Receipt Date: 20240909
  Transmission Date: 20241016
  Serious: Yes (Other)
  Sender: Public
  Company Number: None

PATIENT
  Age: 50 Year
  Sex: Female
  Weight: 63 kg

DRUGS (3)
  1. REXULTI [Suspect]
     Active Substance: BREXPIPRAZOLE
     Indication: Depression
     Dosage: FREQUENCY : AT BEDTIME;?
     Route: 048
     Dates: start: 20220904
  2. Esitalopram [Concomitant]
  3. ZOPICLONE [Concomitant]
     Active Substance: ZOPICLONE

REACTIONS (16)
  - Dizziness [None]
  - Product use issue [None]
  - Heart rate increased [None]
  - Anxiety [None]
  - Syncope [None]
  - Headache [None]
  - Muscle spasms [None]
  - Nausea [None]
  - Cold sweat [None]
  - Abdominal distension [None]
  - Pollakiuria [None]
  - Gait disturbance [None]
  - Dyspnoea [None]
  - Paraesthesia [None]
  - Eye pain [None]
  - Tinnitus [None]

NARRATIVE: CASE EVENT DATE: 20240909
